FAERS Safety Report 24327793 (Version 4)
Quarter: 2024Q4

REPORT INFORMATION
  Report Type: Report from Study
  Country: US (occurrence: US)
  Receive Date: 20240917
  Receipt Date: 20241128
  Transmission Date: 20250115
  Serious: Yes (Hospitalization, Other)
  Sender: TAKEDA
  Company Number: US-TAKEDA-2024TUS092152

PATIENT
  Age: 58 Year
  Sex: Female

DRUGS (5)
  1. LANADELUMAB [Suspect]
     Active Substance: LANADELUMAB
     Indication: Immune system disorder
     Dosage: UNK UNK, Q4WEEKS
     Dates: start: 2021
  2. LANADELUMAB [Suspect]
     Active Substance: LANADELUMAB
     Indication: Hereditary angioedema with normal C1 esterase inhibitor
     Dosage: 300 MILLIGRAM, Q2WEEKS
     Dates: start: 202203
  3. LANADELUMAB [Suspect]
     Active Substance: LANADELUMAB
     Dosage: UNK UNK, Q4WEEKS
  4. LANADELUMAB [Suspect]
     Active Substance: LANADELUMAB
     Dosage: 300 MILLIGRAM, Q4WEEKS
  5. ICATIBANT ACETATE [Concomitant]
     Active Substance: ICATIBANT ACETATE
     Dosage: UNK

REACTIONS (4)
  - Pneumonia [Recovered/Resolved]
  - Weight increased [Unknown]
  - Hereditary angioedema [Unknown]
  - Weight decreased [Recovered/Resolved]

NARRATIVE: CASE EVENT DATE: 20240811
